FAERS Safety Report 10246261 (Version 2)
Quarter: 2017Q3

REPORT INFORMATION
  Report Type: Spontaneous
  Country: US (occurrence: US)
  Receive Date: 20140619
  Receipt Date: 20170914
  Transmission Date: 20171127
  Serious: Yes (Other)
  Sender: FDA-Public Use
  Company Number: US-ROCHE-1420249

PATIENT
  Age: 77 Year
  Sex: Female

DRUGS (3)
  1. FOSAMAX [Suspect]
     Active Substance: ALENDRONATE SODIUM
     Indication: OSTEOPOROSIS
     Dosage: STARTED IN MID 1990^S.
     Route: 048
     Dates: end: 200603
  2. BONIVA [Suspect]
     Active Substance: IBANDRONATE SODIUM
     Indication: OSTEOPOROSIS
     Route: 048
     Dates: start: 200604, end: 200808
  3. ALENDRONATE SODIUM. [Suspect]
     Active Substance: ALENDRONATE SODIUM
     Indication: OSTEOPOROSIS
     Route: 048
     Dates: start: 2008, end: 201104

REACTIONS (7)
  - Emotional distress [Unknown]
  - Low turnover osteopathy [Unknown]
  - Stress fracture [Unknown]
  - Ankle fracture [Unknown]
  - Upper limb fracture [Unknown]
  - Anxiety [Unknown]
  - Femur fracture [Unknown]

NARRATIVE: CASE EVENT DATE: 20110606
